FAERS Safety Report 11512069 (Version 1)
Quarter: 2015Q3

REPORT INFORMATION
  Report Type: Spontaneous
  Country: US (occurrence: US)
  Receive Date: 20150916
  Receipt Date: 20150916
  Transmission Date: 20151125
  Serious: No
  Sender: FDA-Public Use
  Company Number: US-009507513-1509USA006331

PATIENT
  Age: 51 Year
  Sex: Male

DRUGS (9)
  1. WARFARIN [Concomitant]
     Active Substance: WARFARIN
  2. CARVEDILOL. [Concomitant]
     Active Substance: CARVEDILOL
  3. METFORMIN [Concomitant]
     Active Substance: METFORMIN HYDROCHLORIDE
  4. JANUVIA [Suspect]
     Active Substance: SITAGLIPTIN PHOSPHATE
     Indication: DIABETES MELLITUS
     Dosage: 100 MG, QD
     Route: 048
     Dates: start: 201507, end: 2015
  5. TORSEMIDE. [Concomitant]
     Active Substance: TORSEMIDE
  6. LIPITOR [Concomitant]
     Active Substance: ATORVASTATIN CALCIUM
  7. GLIPIZIDE. [Concomitant]
     Active Substance: GLIPIZIDE
  8. SPIRONOLACTONE. [Concomitant]
     Active Substance: SPIRONOLACTONE
  9. BENAZEPRIL HYDROCHLORIDE. [Concomitant]
     Active Substance: BENAZEPRIL HYDROCHLORIDE

REACTIONS (2)
  - Blood glucose increased [Not Recovered/Not Resolved]
  - Drug dose omission [Unknown]

NARRATIVE: CASE EVENT DATE: 2015
